FAERS Safety Report 18361060 (Version 1)
Quarter: 2020Q4

REPORT INFORMATION
  Report Type: Report from Study
  Country: CA (occurrence: CA)
  Receive Date: 20201008
  Receipt Date: 20201008
  Transmission Date: 20210114
  Serious: Yes (Other)
  Sender: FDA-Public Use
  Company Number: CA-GLAXOSMITHKLINE-CA2020AMR197658

PATIENT
  Age: 58 Year
  Sex: Female

DRUGS (3)
  1. MEPOLIZUMAB [Suspect]
     Active Substance: MEPOLIZUMAB
     Indication: ASTHMA
     Dosage: 100 MG, Z
     Route: 042
     Dates: start: 20190218
  2. CORTISON [Suspect]
     Active Substance: CORTISONE ACETATE
     Indication: PRODUCT USED FOR UNKNOWN INDICATION
     Dosage: 375 MG
  3. CORTISON [Suspect]
     Active Substance: CORTISONE ACETATE
     Dosage: 50 MG
     Dates: start: 20200930

REACTIONS (5)
  - Tachycardia [Not Recovered/Not Resolved]
  - Heart rate increased [Unknown]
  - Myalgia [Unknown]
  - Asthmatic crisis [Unknown]
  - Arthralgia [Unknown]

NARRATIVE: CASE EVENT DATE: 20200912
